FAERS Safety Report 12489906 (Version 1)
Quarter: 2016Q2

REPORT INFORMATION
  Report Type: Spontaneous
  Country: US (occurrence: US)
  Receive Date: 20160622
  Receipt Date: 20160622
  Transmission Date: 20160815
  Serious: Yes (Other)
  Sender: FDA-Public Use
  Company Number: US-BAYER-2016-117337

PATIENT
  Age: 58 Year
  Sex: Female
  Weight: 82.54 kg

DRUGS (4)
  1. BYSTOLIC [Concomitant]
     Active Substance: NEBIVOLOL HYDROCHLORIDE
  2. SPIRONOLACTONE. [Concomitant]
     Active Substance: SPIRONOLACTONE
  3. MIRALAX [Suspect]
     Active Substance: POLYETHYLENE GLYCOL 3350
     Indication: CONSTIPATION
     Dosage: 1 DF, PRN
     Route: 048
  4. XANAX [Concomitant]
     Active Substance: ALPRAZOLAM

REACTIONS (5)
  - Diarrhoea [None]
  - Drug administration error [None]
  - Anxiety [Not Recovered/Not Resolved]
  - Expired product administered [None]
  - Inappropriate schedule of drug administration [None]

NARRATIVE: CASE EVENT DATE: 20160614
